FAERS Safety Report 22697004 (Version 2)
Quarter: 2024Q2

REPORT INFORMATION
  Report Type: Spontaneous
  Country: GB (occurrence: GB)
  Receive Date: 20230712
  Receipt Date: 20240410
  Transmission Date: 20240715
  Serious: Yes (Other)
  Sender: FDA-Public Use
  Company Number: GB-MHRA-MED-202306260027332700-RCGBH

PATIENT
  Age: 21 Year
  Sex: Male
  Weight: 62 kg

DRUGS (2)
  1. SERTRALINE [Suspect]
     Active Substance: SERTRALINE HYDROCHLORIDE
     Indication: Product used for unknown indication
     Dosage: 50MG ONCE A DAY IN THE MORNING; ;
     Route: 065
  2. LISDEXAMFETAMINE DIMESYLATE [Concomitant]
     Active Substance: LISDEXAMFETAMINE DIMESYLATE
     Indication: Attention deficit hyperactivity disorder
     Dosage: UNK
     Route: 065

REACTIONS (1)
  - Hyperhidrosis [Not Recovered/Not Resolved]
